FAERS Safety Report 4900593-1 (Version None)
Quarter: 2006Q1

REPORT INFORMATION
  Report Type: 
  Country: None (occurrence: None)
  Receive Date: 20060201
  Receipt Date: 20060120
  Transmission Date: 20060701
  Serious: Yes (Hospitalization, Other)
  Sender: FDA-Public Use
  Company Number: KII-2006-0020960

PATIENT
  Age: 19 Year
  Sex: Male

DRUGS (2)
  1. OXYCONTIN [Suspect]
     Indication: INTENTIONAL DRUG MISUSE
     Dosage: SEE TEXT, INTRAVENOUS
     Route: 042
  2. CANNABIS(CANNABIS) [Suspect]
     Indication: INTENTIONAL DRUG MISUSE

REACTIONS (4)
  - INCORRECT ROUTE OF DRUG ADMINISTRATION [None]
  - INTENTIONAL DRUG MISUSE [None]
  - LOSS OF CONSCIOUSNESS [None]
  - POLYSUBSTANCE ABUSE [None]
